FAERS Safety Report 7830073-5 (Version None)
Quarter: 2011Q4

REPORT INFORMATION
  Report Type: 
  Country: None (occurrence: None)
  Receive Date: 20111021
  Receipt Date: 20111019
  Transmission Date: 20120403
  Serious: No
  Sender: FDA-Public Use
  Company Number: US-B.I. PHARMACEUTICALS,INC./RIDGEFIELD-2011-BP-24594BP

PATIENT

DRUGS (1)
  1. TRADJENTA [Suspect]

REACTIONS (2)
  - ALOPECIA [None]
  - PAIN OF SKIN [None]
